FAERS Safety Report 7437347-0 (Version None)
Quarter: 2011Q2

REPORT INFORMATION
  Report Type: 
  Country: None (occurrence: None)
  Receive Date: 20110426
  Receipt Date: 20110413
  Transmission Date: 20111010
  Serious: Yes (Other)
  Sender: FDA-Public Use
  Company Number: PHHY2011US32423

PATIENT
  Age: 50 Year
  Sex: Male

DRUGS (1)
  1. TEKTURNA HCT [Suspect]
     Indication: HYPERTENSION
     Dosage: 300 MG ALIS AND 12.5 MG HCT, ONCE DAILY
     Route: 048
     Dates: start: 20100101, end: 20110401

REACTIONS (2)
  - CARDIOMYOPATHY [None]
  - HYPONATRAEMIA [None]
